FAERS Safety Report 7361134-5 (Version None)
Quarter: 2011Q1

REPORT INFORMATION
  Report Type: 
  Country: None (occurrence: None)
  Receive Date: 20110315
  Receipt Date: 20110315
  Transmission Date: 20110831
  Serious: No
  Sender: FDA-Public Use
  Company Number: None

PATIENT
  Age: 63 Year
  Sex: Male
  Weight: 78.9259 kg

DRUGS (3)
  1. LIPITOR [Concomitant]
  2. GLUCOSAMINE [Concomitant]
  3. FINASTERIDE [Suspect]
     Indication: PROSTATOMEGALY
     Dosage: 5MG 1 A DAY MOUTH
     Route: 048
     Dates: start: 20110114, end: 20110130

REACTIONS (7)
  - NERVOUSNESS [None]
  - PALPITATIONS [None]
  - DIZZINESS [None]
  - BLOOD PRESSURE INCREASED [None]
  - HEART RATE IRREGULAR [None]
  - BURNING SENSATION [None]
  - DYSPEPSIA [None]
